FAERS Safety Report 5186408-8 (Version None)
Quarter: 2006Q4

REPORT INFORMATION
  Report Type: 
  Country: None (occurrence: None)
  Receive Date: 20061213
  Receipt Date: 20061201
  Transmission Date: 20070319
  Serious: No
  Sender: FDA-Public Use
  Company Number: 2006144119

PATIENT
  Age: 66 Year
  Sex: Female
  Weight: 74 kg

DRUGS (7)
  1. AMLODIPINE [Suspect]
     Indication: HYPERTENSION
  2. STAGID (METFORMIN EMBONATE) [Concomitant]
  3. APPROVEL (IRBESARTAN) [Concomitant]
  4. LASIX [Concomitant]
  5. BISOPROLOL FUMARATE [Concomitant]
  6. CRESTOR [Concomitant]
  7. ASPIRIN [Concomitant]

REACTIONS (2)
  - METANEPHRINE URINE INCREASED [None]
  - NEOPLASM [None]
